FAERS Safety Report 4641780-X (Version None)
Quarter: 2005Q2

REPORT INFORMATION
  Report Type: 
  Country: None (occurrence: None)
  Receive Date: 20050420
  Receipt Date: 20050404
  Transmission Date: 20051028
  Serious: Yes (Hospitalization, Other)
  Sender: FDA-Public Use
  Company Number: US_0504115138

PATIENT
  Age: 71 Year
  Sex: Female
  Weight: 34 kg

DRUGS (1)
  1. FORTEO [Suspect]
     Indication: OSTEOPOROSIS
     Dates: start: 20040801, end: 20050205

REACTIONS (9)
  - BONE PAIN [None]
  - FALL [None]
  - HIP FRACTURE [None]
  - IMPLANT SITE REACTION [None]
  - LOWER LIMB DEFORMITY [None]
  - MUSCULOSKELETAL DISCOMFORT [None]
  - PARAESTHESIA [None]
  - PHARMACEUTICAL PRODUCT COMPLAINT [None]
  - POST PROCEDURAL COMPLICATION [None]
